FAERS Safety Report 17818245 (Version 1)
Quarter: 2020Q2

REPORT INFORMATION
  Report Type: Not Available
  Country: US (occurrence: US)
  Receive Date: 20200522
  Receipt Date: 20200522
  Transmission Date: 20200714
  Serious: Yes (Death)
  Sender: FDA-Public Use
  Company Number: US-NEUROCRINE BIOSCIENCES INC.-2020NBI01601

PATIENT
  Age: 71 Year
  Sex: Male

DRUGS (3)
  1. INGREZZA [Suspect]
     Active Substance: VALBENAZINE
     Indication: TARDIVE DYSKINESIA
     Dosage: 80 MG AND 40 MG CAPSULE
     Route: 048
     Dates: start: 20170717, end: 20170723
  2. INGREZZA [Suspect]
     Active Substance: VALBENAZINE
     Dosage: 80 MG AND 40 MG CAPSULE
     Route: 048
     Dates: start: 20170724
  3. INGREZZA [Suspect]
     Active Substance: VALBENAZINE
     Dosage: 40 MG AND 80 MG CAPSULE
     Route: 048
     Dates: end: 20200510

REACTIONS (2)
  - Death [Fatal]
  - Prescribed overdose [Unknown]

NARRATIVE: CASE EVENT DATE: 20200510
